FAERS Safety Report 7026995-8 (Version None)
Quarter: 2010Q4

REPORT INFORMATION
  Report Type: 
  Country: None (occurrence: None)
  Receive Date: 20101004
  Receipt Date: 20100924
  Transmission Date: 20110411
  Serious: Yes (Hospitalization, Other)
  Sender: FDA-Public Use
  Company Number: US-PURDUE-USA-2010-0047526

PATIENT
  Age: 56 Year
  Sex: Female

DRUGS (1)
  1. OXYCONTIN [Suspect]
     Indication: PAIN
     Dosage: 100 MG, TID
     Dates: start: 20100901

REACTIONS (7)
  - COLD SWEAT [None]
  - DIARRHOEA [None]
  - DRUG EFFECT INCREASED [None]
  - DYSGEUSIA [None]
  - DYSPNOEA [None]
  - THROAT TIGHTNESS [None]
  - VOMITING [None]
